FAERS Safety Report 5786615-7 (Version None)
Quarter: 2008Q2

REPORT INFORMATION
  Report Type: 
  Country: None (occurrence: None)
  Receive Date: 20080624
  Receipt Date: 20080612
  Transmission Date: 20081010
  Serious: Yes (Other)
  Sender: FDA-Public Use
  Company Number: GB-PFIZER INC-2008050039

PATIENT
  Age: 54 Year
  Sex: Male

DRUGS (3)
  1. CHANTIX [Suspect]
     Indication: SMOKING CESSATION THERAPY
     Route: 048
     Dates: start: 20080214, end: 20080414
  2. ALPROSTADIL [Concomitant]
  3. SERETIDE [Concomitant]
     Route: 055

REACTIONS (4)
  - ABNORMAL DREAMS [None]
  - AMNESIA [None]
  - CONFUSIONAL STATE [None]
  - HEADACHE [None]
